FAERS Safety Report 15256557 (Version 1)
Quarter: 2018Q3

REPORT INFORMATION
  Report Type: Report from Study
  Country: DE (occurrence: DE)
  Receive Date: 20180808
  Receipt Date: 20180808
  Transmission Date: 20181010
  Serious: Yes (Hospitalization)
  Sender: FDA-Public Use
  Company Number: DE-TEVA-2018-DE-936054

PATIENT
  Sex: Female
  Weight: 66 kg

DRUGS (7)
  1. FLUOROURACIL. [Suspect]
     Active Substance: FLUOROURACIL
     Indication: ADENOCARCINOMA PANCREAS
     Dosage: LAST ADMINISTRATION BEFORE SAE ONSET: 07?JUL?2017
     Route: 042
     Dates: start: 20170623
  2. DEXAMETHASONE. [Concomitant]
     Active Substance: DEXAMETHASONE
     Indication: PROPHYLAXIS
     Dosage: LAST ADMINISTRATION BEFORE SAE ONSET: 07?JUL?2017
     Route: 042
     Dates: start: 20170623
  3. OXALIPLATIN. [Suspect]
     Active Substance: OXALIPLATIN
     Indication: ADENOCARCINOMA PANCREAS
     Dosage: LAST ADMINISTRATION BEFORE SAE ONSET: 07?JUL?2017
     Route: 042
     Dates: start: 20170623
  4. ONCOFOLIC [Suspect]
     Active Substance: FOLATE SODIUM
     Indication: ADENOCARCINOMA PANCREAS
     Dosage: LAST ADMINISTRATION BEFORE SAE ONSET: 07?JUL?2017
     Route: 042
     Dates: start: 20170623
  5. ALOXI [Concomitant]
     Active Substance: PALONOSETRON HYDROCHLORIDE
     Indication: PROPHYLAXIS
     Dosage: LAST ADMINISTRATION BEFORE SAE ONSET: 07?JUL?2017
     Route: 042
     Dates: start: 20170623
  6. ALOXI [Concomitant]
     Active Substance: PALONOSETRON HYDROCHLORIDE
     Indication: ADENOCARCINOMA PANCREAS
     Dosage: LAST ADMINISTRATION BEFORE SAE ONSET: 07?JUL?2017
     Route: 042
     Dates: start: 20170623
  7. DEXAMETHASONE. [Concomitant]
     Active Substance: DEXAMETHASONE
     Indication: ADENOCARCINOMA PANCREAS
     Dosage: LAST ADMINISTRATION BEFORE SAE ONSET: 07?JUL?2017
     Route: 042
     Dates: start: 20170623

REACTIONS (1)
  - Pancytopenia [Recovered/Resolved]

NARRATIVE: CASE EVENT DATE: 20170709
